FAERS Safety Report 11623015 (Version 1)
Quarter: 2015Q4

REPORT INFORMATION
  Report Type: Spontaneous
  Country: US (occurrence: US)
  Receive Date: 20151013
  Receipt Date: 20151013
  Transmission Date: 20160304
  Serious: No
  Sender: FDA-Public Use
  Company Number: US-JNJFOC-20150413266

PATIENT
  Sex: Male

DRUGS (2)
  1. TYLENOL COLD SORE THROAT EXTRA STRENGTH [Suspect]
     Active Substance: ACETAMINOPHEN
     Indication: ARTHRALGIA
     Dosage: 2 TABLEBSPOON, EVERY 4-6 HOURS AS NEEDED
     Route: 048
  2. TYLENOL COLD SORE THROAT EXTRA STRENGTH [Suspect]
     Active Substance: ACETAMINOPHEN
     Indication: PYREXIA
     Dosage: 2 TABLEBSPOON, EVERY 4-6 HOURS AS NEEDED
     Route: 048

REACTIONS (4)
  - Off label use [Unknown]
  - Eye irritation [Recovered/Resolved]
  - Paraesthesia oral [Recovered/Resolved]
  - Swelling face [Recovered/Resolved]
